FAERS Safety Report 22031772 (Version 4)
Quarter: 2024Q2

REPORT INFORMATION
  Report Type: Spontaneous
  Country: JP (occurrence: JP)
  Receive Date: 20230224
  Receipt Date: 20240506
  Transmission Date: 20240715
  Serious: Yes (Hospitalization)
  Sender: FDA-Public Use
  Company Number: JP-JNJFOC-20230246648

PATIENT
  Age: 75 Year
  Sex: Female

DRUGS (3)
  1. OPSUMIT [Suspect]
     Active Substance: MACITENTAN
     Indication: Pulmonary arterial hypertension
     Route: 048
     Dates: start: 20221206
  2. BEPRIDIL [Suspect]
     Active Substance: BEPRIDIL
     Indication: Arrhythmia
     Dosage: DOSE UNKNOWN
     Route: 048
  3. TOLVAPTAN [Concomitant]
     Active Substance: TOLVAPTAN
     Route: 048
     Dates: start: 2023

REACTIONS (5)
  - Fall [Unknown]
  - Generalised oedema [Recovered/Resolved]
  - Dizziness [Recovering/Resolving]
  - Clavicle fracture [Recovering/Resolving]
  - Pleural effusion [Recovered/Resolved]

NARRATIVE: CASE EVENT DATE: 20221201
